FAERS Safety Report 4867829-7 (Version None)
Quarter: 2005Q4

REPORT INFORMATION
  Report Type: 
  Country: None (occurrence: None)
  Receive Date: 20051228
  Receipt Date: 20051216
  Transmission Date: 20060501
  Serious: Yes (Hospitalization)
  Sender: FDA-Public Use
  Company Number: US-MERCK-0512USA03195

PATIENT
  Sex: Female

DRUGS (20)
  1. ZOCOR [Suspect]
     Route: 048
     Dates: end: 20010827
  2. ZOCOR [Suspect]
     Route: 048
     Dates: end: 20040601
  3. TOPROL-XL [Concomitant]
     Route: 048
  4. PLAVIX [Concomitant]
     Route: 048
  5. FOSAMAX [Concomitant]
     Indication: OSTEOPOROSIS
     Route: 048
  6. PREDNISONE [Concomitant]
     Route: 065
  7. PROGRAF [Concomitant]
     Route: 065
  8. BACTRIM [Concomitant]
     Route: 048
     Dates: end: 20050414
  9. CELLCEPT [Concomitant]
     Route: 048
  10. ACYCLOVIR [Concomitant]
     Route: 065
  11. ESTRADERM [Concomitant]
     Route: 065
  12. MAGNESIUM OXIDE [Concomitant]
     Route: 048
  13. PRILOSEC [Concomitant]
     Route: 048
  14. VORICONAZOLE [Concomitant]
     Route: 048
  15. VITAMINS (UNSPECIFIED) [Concomitant]
     Route: 048
  16. NEURONTIN [Concomitant]
     Route: 048
  17. ASACOL [Concomitant]
     Route: 048
  18. ZITHROMAX [Concomitant]
     Route: 048
  19. ADVAIR DISKUS 100/50 [Concomitant]
     Route: 055
  20. GLYBURIDE [Concomitant]
     Route: 048

REACTIONS (30)
  - ANAEMIA MACROCYTIC [None]
  - BACTERIAL INFECTION [None]
  - BRONCHIECTASIS [None]
  - CELLULITIS [None]
  - CORONARY ARTERY DISEASE [None]
  - CROHN'S DISEASE [None]
  - CYTOMEGALOVIRUS INFECTION [None]
  - DEEP VEIN THROMBOSIS [None]
  - DIABETES MELLITUS [None]
  - DYSPNOEA EXERTIONAL [None]
  - ENTERITIS [None]
  - EYE HAEMORRHAGE [None]
  - FAILURE TO THRIVE [None]
  - HERPES ZOSTER [None]
  - HYPERTENSION [None]
  - HYPOGAMMAGLOBULINAEMIA [None]
  - MARROW HYPERPLASIA [None]
  - MIGRAINE [None]
  - MYOCARDIAL INFARCTION [None]
  - PANCYTOPENIA [None]
  - PARAESTHESIA [None]
  - PNEUMONIA [None]
  - PNEUMONIA PARAINFLUENZAE VIRAL [None]
  - PROTEINURIA [None]
  - RENAL FAILURE CHRONIC [None]
  - RENAL TUBULAR NECROSIS [None]
  - RESPIRATORY FAILURE [None]
  - RHABDOMYOLYSIS [None]
  - RHINITIS ALLERGIC [None]
  - TRANSPLANT REJECTION [None]
